FAERS Safety Report 4457402-7 (Version None)
Quarter: 2004Q3

REPORT INFORMATION
  Report Type: 
  Country: None (occurrence: None)
  Receive Date: 20040922
  Receipt Date: 20040908
  Transmission Date: 20050211
  Serious: Yes (Hospitalization, Other)
  Sender: FDA-Public Use
  Company Number: USA040669705

PATIENT
  Age: 57 Year
  Sex: Male
  Weight: 74 kg

DRUGS (13)
  1. STRATTERA [Suspect]
     Indication: ATTENTION DEFICIT/HYPERACTIVITY DISORDER
     Dates: end: 20040604
  2. ZYPREXA [Suspect]
     Route: 048
  3. LEXAPRO [Concomitant]
  4. DILANTIN [Concomitant]
  5. COUMADIN [Concomitant]
  6. TYLENOL [Concomitant]
  7. METOPROLOL [Concomitant]
  8. MEMANTINE HYDROCHLORIDE [Concomitant]
  9. REMINYL [Concomitant]
  10. TRILEPTAL [Concomitant]
  11. BROMOCRYPTINE MESYLATE [Concomitant]
  12. DANTROLENE [Concomitant]
  13. LEVAQUIN [Concomitant]

REACTIONS (17)
  - BLOOD CHLORIDE INCREASED [None]
  - BLOOD POTASSIUM DECREASED [None]
  - CEREBRAL ATROPHY [None]
  - DISEASE RECURRENCE [None]
  - ELECTROENCEPHALOGRAM ABNORMAL [None]
  - FOREIGN BODY TRAUMA [None]
  - HAEMATOCRIT DECREASED [None]
  - HAEMOGLOBIN DECREASED [None]
  - NEUROLEPTIC MALIGNANT SYNDROME [None]
  - PLATELET COUNT INCREASED [None]
  - PLEURAL EFFUSION [None]
  - PNEUMONIA ASPIRATION [None]
  - POST PROCEDURAL COMPLICATION [None]
  - RHABDOMYOLYSIS [None]
  - SEROTONIN SYNDROME [None]
  - SPUTUM CULTURE POSITIVE [None]
  - STAPHYLOCOCCAL INFECTION [None]
